FAERS Safety Report 8404164-4 (Version None)
Quarter: 2012Q2

REPORT INFORMATION
  Report Type: 
  Country: None (occurrence: None)
  Receive Date: 20120601
  Receipt Date: 20120529
  Transmission Date: 20120825
  Serious: Yes (Death)
  Sender: FDA-Public Use
  Company Number: CHPA2012US011231

PATIENT
  Age: 79 Year
  Sex: Male

DRUGS (1)
  1. ALUMINUM HYDROXIDE AND MAGNESIUM TRISILICATE [Suspect]
     Indication: DYSPEPSIA
     Dosage: UNK, UNK
     Route: 048

REACTIONS (1)
  - DEATH [None]
